FAERS Safety Report 8018046-3 (Version None)
Quarter: 2012Q1

REPORT INFORMATION
  Report Type: 
  Country: None (occurrence: None)
  Receive Date: 20120103
  Receipt Date: 20111227
  Transmission Date: 20120608
  Serious: Yes (Hospitalization, Other)
  Sender: FDA-Public Use
  Company Number: PR-JNJFOC-20111211339

PATIENT
  Sex: Male
  Weight: 62.6 kg

DRUGS (4)
  1. RISPERDAL [Suspect]
     Indication: ATTENTION DEFICIT/HYPERACTIVITY DISORDER
     Route: 048
     Dates: end: 20110301
  2. HUMIRA [Suspect]
     Indication: PSORIASIS
     Dosage: 40 MG, 1 IN 15 D
     Route: 058
     Dates: start: 20070101, end: 20100101
  3. BUPROPION HCL [Suspect]
     Indication: DISTURBANCE IN ATTENTION
     Route: 048
     Dates: end: 20110301
  4. DIPHENHYDRAMINE HCL [Suspect]
     Indication: PRODUCT USED FOR UNKNOWN INDICATION
     Route: 048
     Dates: end: 20110301

REACTIONS (5)
  - DENGUE FEVER [None]
  - PSYCHIATRIC SYMPTOM [None]
  - HYPERTENSION [None]
  - IMMUNE SYSTEM DISORDER [None]
  - PLATELET COUNT DECREASED [None]
